FAERS Safety Report 4363244-3 (Version None)
Quarter: 2004Q2

REPORT INFORMATION
  Report Type: 
  Country: None (occurrence: None)
  Receive Date: 20040519
  Receipt Date: 20040517
  Transmission Date: 20050107
  Serious: Yes (Death)
  Sender: FDA-Public Use
  Company Number: 03P-167-0234834-00

PATIENT
  Age: 12 Year
  Sex: Female

DRUGS (1)
  1. VALPROATE SODIUM [Suspect]
     Indication: TEMPORAL LOBE EPILEPSY
     Dosage: 3 IN 1 D
     Dates: start: 19770101, end: 19780414

REACTIONS (3)
  - COMA [None]
  - DELIRIUM [None]
  - HYPERAMMONAEMIA [None]
